FAERS Safety Report 10623422 (Version 2)
Quarter: 2014Q4

REPORT INFORMATION
  Report Type: Report from Study
  Country: PL (occurrence: PL)
  Receive Date: 20141203
  Receipt Date: 20141215
  Transmission Date: 20150529
  Serious: Yes (Hospitalization, Other)
  Sender: FDA-Public Use
  Company Number: PL-GILEAD-2014-0124348

PATIENT
  Age: 82 Year
  Sex: Female
  Weight: 82 kg

DRUGS (8)
  1. RANOLAZINE [Suspect]
     Active Substance: RANOLAZINE
     Indication: ANGINA PECTORIS
     Dosage: 1000 MG, BID
     Route: 048
     Dates: start: 20130505, end: 20141112
  2. ASA [Concomitant]
     Active Substance: ASPIRIN
     Indication: ANTIPLATELET THERAPY
     Dosage: UNK
     Dates: start: 20130427
  3. GENSULIN N [Concomitant]
     Indication: DIABETES MELLITUS
     Dosage: UNK
     Dates: start: 20130428
  4. EXFORGE [Concomitant]
     Active Substance: AMLODIPINE BESYLATE\VALSARTAN
     Indication: CORONARY ARTERY DISEASE
     Dosage: UNK
     Dates: start: 20140908
  5. PIRACETAM [Concomitant]
     Active Substance: PIRACETAM
     Dosage: UNK
     Dates: start: 20140418
  6. EUTHYROX [Concomitant]
     Active Substance: LEVOTHYROXINE SODIUM
     Indication: THYROID DISORDER
     Dosage: UNK
     Dates: start: 20130427
  7. ATORVASTEROL [Concomitant]
     Indication: LIPIDS ABNORMAL
     Dosage: UNK
     Dates: start: 20140704
  8. AMLORATIO [Concomitant]
     Indication: PROPHYLAXIS
     Dosage: UNK
     Dates: start: 20140731

REACTIONS (1)
  - Loss of consciousness [Recovered/Resolved]

NARRATIVE: CASE EVENT DATE: 20140704
